FAERS Safety Report 10699423 (Version 4)
Quarter: 2015Q1

REPORT INFORMATION
  Report Type: Spontaneous
  Country: FI (occurrence: FI)
  Receive Date: 20150109
  Receipt Date: 20150326
  Transmission Date: 20150721
  Serious: Yes (Hospitalization, Other)
  Sender: FDA-Public Use
  Company Number: FI-ROCHE-1518675

PATIENT
  Sex: Female

DRUGS (2)
  1. XELODA [Suspect]
     Active Substance: CAPECITABINE
     Indication: RECTAL CANCER
     Dosage: 8 CYCLES
     Route: 065
     Dates: start: 20121130, end: 20130516
  2. OXALIPLATIN. [Suspect]
     Active Substance: OXALIPLATIN
     Indication: RECTAL CANCER
     Dosage: 7 CYCLES
     Route: 065
     Dates: start: 20121130, end: 2013

REACTIONS (5)
  - Metastases to liver [Unknown]
  - Anastomotic fistula [Recovered/Resolved]
  - Neuropathy peripheral [Recovered/Resolved]
  - Sensory loss [Unknown]
  - Palmar-plantar erythrodysaesthesia syndrome [Recovered/Resolved]

NARRATIVE: CASE EVENT DATE: 2013
